FAERS Safety Report 8784407 (Version 1)
Quarter: 2012Q4

REPORT INFORMATION
  Report Type: 
  Country: DE (occurrence: DE)
  Receive Date: 20120913
  Receipt Date: 20120913
  Transmission Date: 20130627
  Serious: Yes (Other)
  Sender: FDA-Public Use
  Company Number: DE-PFIZER INC-2012223650

PATIENT
  Sex: Female
  Weight: 67 kg

DRUGS (1)
  1. LYRICA [Suspect]
     Indication: POST HERPETIC NEURALGIA
     Dosage: 100 mg, 2x/day
     Route: 048
     Dates: start: 20120220, end: 20120328

REACTIONS (1)
  - Mental impairment [Recovered/Resolved]
